FAERS Safety Report 4285833-7 (Version None)
Quarter: 2004Q1

REPORT INFORMATION
  Report Type: 
  Country: None (occurrence: None)
  Receive Date: 20040203
  Receipt Date: 20040126
  Transmission Date: 20041129
  Serious: Yes (Death, Hospitalization)
  Sender: FDA-Public Use
  Company Number: STA-AE-03-MTX-092

PATIENT
  Age: 73 Year
  Sex: Female

DRUGS (10)
  1. RHEUMATREX [Suspect]
     Indication: RHEUMATOID ARTHRITIS
     Dosage: 8-10 MG WEEKLY ORAL
     Route: 048
  2. PREDNISOLONE [Concomitant]
  3. AZULFIDINE [Concomitant]
  4. IMPROMEN (BROMPERIDOL) [Concomitant]
  5. CHLORPROMAZINE HCL [Concomitant]
  6. AKINETON [Concomitant]
  7. TEGRETOL [Concomitant]
  8. HIRNAMIN (LEVOMEPROMAZINE) [Concomitant]
  9. EURODIN (ESTAZOLAM) [Concomitant]
  10. LANSOPRAZOLE [Concomitant]

REACTIONS (3)
  - CHOKING [None]
  - INTERSTITIAL LUNG DISEASE [None]
  - STAPHYLOCOCCAL INFECTION [None]
